FAERS Safety Report 5267049-0 (Version None)
Quarter: 2007Q1

REPORT INFORMATION
  Report Type: 
  Country: None (occurrence: None)
  Receive Date: 20070313
  Receipt Date: 20070306
  Transmission Date: 20070707
  Serious: No
  Sender: FDA-Public Use
  Company Number: 152694USA

PATIENT
  Age: 85 Year
  Sex: Female
  Weight: 55.3388 kg

DRUGS (6)
  1. BACLOFEN [Suspect]
     Dosage: 5MG TITRATED TO 10 MG, ORAL
     Route: 048
     Dates: start: 20070107, end: 20070108
  2. ALPRAZOLAM [Concomitant]
  3. LOSARTAN POTASSIUM [Concomitant]
  4. HYDROCODONE W/ACETYLSALICYLIC ACID [Concomitant]
  5. WATER PILL [Concomitant]
  6. ACETYLSALICYLIC ACID SRT [Concomitant]

REACTIONS (5)
  - ATRIOVENTRICULAR BLOCK FIRST DEGREE [None]
  - ELECTROCARDIOGRAM ABNORMAL [None]
  - LOSS OF CONSCIOUSNESS [None]
  - RESPIRATORY DEPRESSION [None]
  - SEDATION [None]
